FAERS Safety Report 19483837 (Version 2)
Quarter: 2021Q3

REPORT INFORMATION
  Report Type: Report from Study
  Country: GB (occurrence: GB)
  Receive Date: 20210701
  Receipt Date: 20210716
  Transmission Date: 20211014
  Serious: Yes (Other)
  Sender: FDA-Public Use
  Company Number: NVSC2021GB140853

PATIENT
  Age: 67 Year
  Sex: Female

DRUGS (1)
  1. HYRIMOZ [Suspect]
     Active Substance: ADALIMUMAB-ADAZ
     Indication: RHEUMATOID ARTHRITIS
     Dosage: 40 MG (FORTNIGHTLY)
     Route: 058

REACTIONS (7)
  - Arthralgia [Unknown]
  - Lower respiratory tract infection [Unknown]
  - Appetite disorder [Unknown]
  - Chest pain [Unknown]
  - Cough [Unknown]
  - Oropharyngeal pain [Unknown]
  - Back pain [Unknown]
